FAERS Safety Report 7506104-9 (Version None)
Quarter: 2011Q2

REPORT INFORMATION
  Report Type: 
  Country: None (occurrence: None)
  Receive Date: 20110526
  Receipt Date: 20110518
  Transmission Date: 20111010
  Serious: Yes (Congenital Anomaly)
  Sender: FDA-Public Use
  Company Number: US-B.I. PHARMACEUTICALS,INC./RIDGEFIELD-2010-BP-11575BP

PATIENT
  Sex: Male
  Weight: 3 kg

DRUGS (10)
  1. TOBACCO [Concomitant]
  2. TRIMETHOPRIM + SULFAMETHOXAZOLE [Concomitant]
  3. VIRAMUNE [Suspect]
     Indication: DRUG EXPOSURE DURING PREGNANCY
     Dosage: 200 MG
     Route: 064
     Dates: end: 20101001
  4. DARUNAVIR ETHANOLATE [Concomitant]
     Indication: DRUG EXPOSURE DURING PREGNANCY
     Dosage: 1200 MG
     Route: 064
  5. NELFINAVIR MESYLATE [Concomitant]
     Indication: DRUG EXPOSURE DURING PREGNANCY
     Dosage: 2500 MG
     Route: 064
     Dates: end: 20100715
  6. ETRAVIRINE [Concomitant]
     Indication: DRUG EXPOSURE DURING PREGNANCY
     Dosage: 400 MG
     Route: 064
     Dates: end: 20100715
  7. TRUVADA [Concomitant]
     Indication: DRUG EXPOSURE DURING PREGNANCY
     Route: 064
  8. RALTEGRAVIR [Concomitant]
     Indication: DRUG EXPOSURE DURING PREGNANCY
     Dosage: 800 MG
     Route: 064
  9. RITONAVIR [Concomitant]
     Indication: DRUG EXPOSURE DURING PREGNANCY
     Dosage: 200 MG
     Route: 064
  10. ZIDOVUDINE [Concomitant]
     Indication: DRUG EXPOSURE DURING PREGNANCY
     Dosage: 2000 MG
     Route: 064
     Dates: end: 20101001

REACTIONS (1)
  - CONGENITAL HIP DEFORMITY [None]
